FAERS Safety Report 14863810 (Version 1)
Quarter: 2018Q2

REPORT INFORMATION
  Report Type: Spontaneous
  Country: US (occurrence: US)
  Receive Date: 20180508
  Receipt Date: 20180508
  Transmission Date: 20180711
  Serious: No
  Sender: FDA-Public Use
  Company Number: US-ALKERMES INC.-ALK-2017-002891

PATIENT
  Age: 5 Decade
  Sex: Male
  Weight: 82.99 kg

DRUGS (3)
  1. VIVITROL [Suspect]
     Active Substance: NALTREXONE
     Dosage: 380 MG, EVERY 3 WEEKS
     Route: 030
     Dates: start: 20170622
  2. VIVITROL [Suspect]
     Active Substance: NALTREXONE
     Dosage: 380 MG, EVERY 3 WEEKS
     Route: 030
     Dates: start: 20170714
  3. VIVITROL [Suspect]
     Active Substance: NALTREXONE
     Indication: ALCOHOLISM
     Dosage: 380 MG, QMO
     Route: 030
     Dates: start: 20170530

REACTIONS (3)
  - Therapeutic response shortened [Unknown]
  - Inappropriate schedule of drug administration [Not Recovered/Not Resolved]
  - Alcoholism [Unknown]

NARRATIVE: CASE EVENT DATE: 2017
